FAERS Safety Report 6147261-9 (Version None)
Quarter: 2009Q2

REPORT INFORMATION
  Report Type: 
  Country: None (occurrence: None)
  Receive Date: 20090408
  Receipt Date: 20090331
  Transmission Date: 20091009
  Serious: Yes (Hospitalization)
  Sender: FDA-Public Use
  Company Number: US-JNJFOC-20090400788

PATIENT
  Age: 49 Year
  Sex: Male

DRUGS (21)
  1. DARUNAVIR [Suspect]
     Indication: HIV INFECTION
     Route: 048
  2. ETRAVIRINE [Suspect]
     Indication: HIV INFECTION
     Route: 048
  3. RALTEGRAVIR [Suspect]
     Indication: HIV INFECTION
     Route: 065
  4. RITONAVIR [Suspect]
     Indication: HIV INFECTION
     Route: 065
  5. EPZICOM [Suspect]
     Indication: HIV INFECTION
     Route: 065
  6. GEMFIBROZIL [Concomitant]
  7. TADALAFIL [Concomitant]
  8. NIACIN [Concomitant]
  9. FEXOFENADINE [Concomitant]
  10. FLUOXEDINE [Concomitant]
  11. HYOSCYAMINE [Concomitant]
  12. LISINOPRIL [Concomitant]
  13. LOMOTIL [Concomitant]
  14. LOPERAMIDE HCL [Concomitant]
  15. LORAZEPAM [Concomitant]
  16. ASPIRIN [Concomitant]
  17. FISH OIL [Concomitant]
  18. MARIJUANA [Concomitant]
  19. VITAMIN D3 [Concomitant]
  20. OMEPRAZOLE [Concomitant]
  21. MULTI-VITAMINS [Concomitant]

REACTIONS (1)
  - CHEST PAIN [None]
